FAERS Safety Report 7141770-1 (Version None)
Quarter: 2010Q4

REPORT INFORMATION
  Report Type: 
  Country: None (occurrence: None)
  Receive Date: 20101207
  Receipt Date: 20101125
  Transmission Date: 20110411
  Serious: Yes (Other)
  Sender: FDA-Public Use
  Company Number: BR-GENENTECH-302311

PATIENT
  Sex: Female
  Weight: 78 kg

DRUGS (6)
  1. RITUXIMAB [Suspect]
     Indication: RHEUMATOID ARTHRITIS
     Dosage: 1000 MG, UNK
     Route: 042
     Dates: start: 20090603, end: 20100907
  2. DEFLAZACORT [Suspect]
     Indication: PRODUCT USED FOR UNKNOWN INDICATION
     Dosage: 5 MG, UNK
     Route: 065
  3. NIMESULIDE [Concomitant]
     Indication: PRODUCT USED FOR UNKNOWN INDICATION
     Dosage: 100 MG, UNK
  4. METHOTREXATE [Concomitant]
     Indication: PRODUCT USED FOR UNKNOWN INDICATION
  5. DRAMIN [Concomitant]
     Indication: NAUSEA
     Dosage: UNK
  6. PYRIDOXINE HCL [Concomitant]
     Indication: NAUSEA
     Dosage: UNK

REACTIONS (9)
  - APHONIA [None]
  - ERYTHEMA [None]
  - HOT FLUSH [None]
  - HYPERSENSITIVITY [None]
  - HYPOTHYROIDISM [None]
  - PREMATURE MENOPAUSE [None]
  - PRURITUS [None]
  - SKIN LESION [None]
  - WEIGHT INCREASED [None]
